FAERS Safety Report 16804431 (Version 1)
Quarter: 2019Q3

REPORT INFORMATION
  Report Type: Spontaneous
  Country: US (occurrence: US)
  Receive Date: 20190913
  Receipt Date: 20190913
  Transmission Date: 20191005
  Serious: No
  Sender: FDA-Public Use
  Company Number: US-PFIZER INC-2019397940

PATIENT
  Age: 60 Year
  Sex: Female

DRUGS (2)
  1. IBRANCE [Suspect]
     Active Substance: PALBOCICLIB
     Dosage: 125 MG, DAILY (WITH FOOD FOR 21 DAYS THEN 7 DAYS OFF THEN REPEAT)
     Dates: start: 20190716
  2. IBRANCE [Suspect]
     Active Substance: PALBOCICLIB
     Dosage: 125 MG, DAILY (WITH FOOD FOR 21 DAYS THEN 7 DAYS OFF THEN REPEAT)
     Dates: start: 20190719

REACTIONS (1)
  - White blood cell count decreased [Unknown]
